FAERS Safety Report 25361699 (Version 1)
Quarter: 2025Q2

REPORT INFORMATION
  Report Type: Spontaneous
  Country: US (occurrence: US)
  Receive Date: 20250527
  Receipt Date: 20250527
  Transmission Date: 20250716
  Serious: No
  Sender: ALCON
  Company Number: US-ALCON LABORATORIES-ALC2024US005076

PATIENT
  Sex: Female

DRUGS (2)
  1. SIMBRINZA [Suspect]
     Active Substance: BRIMONIDINE TARTRATE\BRINZOLAMIDE
     Indication: Product used for unknown indication
     Route: 047
  2. SYSTANE COMPLETE PF [Suspect]
     Active Substance: PROPYLENE GLYCOL
     Indication: Lacrimation increased
     Route: 047

REACTIONS (4)
  - Drug ineffective [Unknown]
  - Condition aggravated [Recovered/Resolved]
  - Eye allergy [Recovered/Resolved]
  - Vision blurred [Recovered/Resolved]
